FAERS Safety Report 23408883 (Version 2)
Quarter: 2024Q4

REPORT INFORMATION
  Report Type: Spontaneous
  Country: NP (occurrence: NP)
  Receive Date: 20240117
  Receipt Date: 20241127
  Transmission Date: 20250115
  Serious: Yes (Other)
  Sender: STRIDES
  Company Number: None

PATIENT

DRUGS (2)
  1. PREDNISOLONE [Suspect]
     Active Substance: PREDNISOLONE
     Indication: Product used for unknown indication
     Dosage: UNK, (THE PATIENT MOTHER DOSE WAS 40 MILLIGRAM PER DAY)
     Route: 064
  2. PREDNISOLONE [Suspect]
     Active Substance: PREDNISOLONE
     Dosage: UNK, (THE PATIENT  MOTHER DOSE WAS 10 MILLIGRAM PER DAY, TABLET)
     Route: 064

REACTIONS (3)
  - Pemphigus [Recovered/Resolved]
  - Exposure via breast milk [Unknown]
  - Foetal exposure during pregnancy [Unknown]
